FAERS Safety Report 6302781-9 (Version None)
Quarter: 2009Q3

REPORT INFORMATION
  Report Type: 
  Country: None (occurrence: None)
  Receive Date: 20090810
  Receipt Date: 20090804
  Transmission Date: 20100115
  Serious: Yes (Death, Other)
  Sender: FDA-Public Use
  Company Number: PL-BAYER-200927385GPV

PATIENT
  Age: 58 Year
  Sex: Male
  Weight: 74 kg

DRUGS (4)
  1. NEXAVAR [Suspect]
     Indication: RENAL CELL CARCINOMA
     Dosage: TOTAL DAILY DOSE: 800 MG
     Route: 048
     Dates: start: 20090727, end: 20090803
  2. METYPRED [Concomitant]
     Indication: METASTASES TO CENTRAL NERVOUS SYSTEM
     Dosage: TOTAL DAILY DOSE: 4 MG
     Dates: start: 20090402, end: 20090803
  3. POLPRAZOL [Concomitant]
     Indication: PROPHYLAXIS
     Dosage: TOTAL DAILY DOSE: 20 MG
     Route: 048
     Dates: start: 20090521, end: 20090803
  4. THIOCODIN [Concomitant]
     Route: 048

REACTIONS (6)
  - COUGH [None]
  - DEATH [None]
  - DYSPHONIA [None]
  - HAEMOPTYSIS [None]
  - OROPHARYNGEAL PAIN [None]
  - PURPURA [None]
